FAERS Safety Report 6738504-9 (Version None)
Quarter: 2010Q2

REPORT INFORMATION
  Report Type: 
  Country: None (occurrence: None)
  Receive Date: 20100524
  Receipt Date: 20100517
  Transmission Date: 20101027
  Serious: Yes (Hospitalization)
  Sender: FDA-Public Use
  Company Number: PHHO2009US14525

PATIENT
  Sex: Female

DRUGS (4)
  1. CYCLOSPORINE [Suspect]
     Indication: RENAL TRANSPLANT
     Dosage: 300 MG, QD
     Route: 048
     Dates: start: 20060503
  2. CYCLOSPORINE [Suspect]
     Dosage: UNK
     Route: 048
  3. CELL CEPT [Concomitant]
     Indication: RENAL TRANSPLANT
     Dosage: UNKNOWN
     Route: 048
     Dates: start: 20060502
  4. PREDNISOLONE [Concomitant]

REACTIONS (4)
  - DEHYDRATION [None]
  - ESCHERICHIA BACTERAEMIA [None]
  - PYREXIA [None]
  - URINARY TRACT INFECTION [None]
